FAERS Safety Report 7958778-6 (Version None)
Quarter: 2011Q4

REPORT INFORMATION
  Report Type: 
  Country: None (occurrence: None)
  Receive Date: 20111206
  Receipt Date: 20111202
  Transmission Date: 20120403
  Serious: Yes (Hospitalization, Other)
  Sender: FDA-Public Use
  Company Number: US-JNJFOC-20100702226

PATIENT
  Sex: Female

DRUGS (7)
  1. LEVAQUIN [Suspect]
     Indication: PNEUMONIA
     Route: 048
     Dates: start: 20080606
  2. STEROIDS NOS [Suspect]
     Indication: ILL-DEFINED DISORDER
     Route: 065
     Dates: start: 20080601
  3. LEVAQUIN [Suspect]
     Indication: SINUSITIS
     Route: 048
     Dates: start: 20080606
  4. FLUOROQUINOLONES [Suspect]
     Indication: ILL-DEFINED DISORDER
     Route: 065
     Dates: start: 20080618, end: 20080628
  5. ASTELIN [Concomitant]
     Route: 065
  6. ANTIBIOTICS, NOS [Concomitant]
     Route: 065
  7. DECONGESTANTS NOS [Concomitant]
     Route: 065

REACTIONS (2)
  - ROTATOR CUFF SYNDROME [None]
  - OSTEOARTHRITIS [None]
